FAERS Safety Report 20216116 (Version 3)
Quarter: 2022Q2

REPORT INFORMATION
  Report Type: Spontaneous
  Country: DE (occurrence: DE)
  Receive Date: 20211222
  Receipt Date: 20220422
  Transmission Date: 20220721
  Serious: Yes (Other)
  Sender: FDA-Public Use
  Company Number: DE-NOVARTISPH-NVSC2021DE292154

PATIENT
  Age: 81 Year
  Sex: Female

DRUGS (1)
  1. TIMOLOL MALEATE\TRAVOPROST [Suspect]
     Active Substance: TIMOLOL MALEATE\TRAVOPROST
     Indication: Product used for unknown indication
     Dosage: 1 DRP, QD
     Route: 047

REACTIONS (3)
  - Dry age-related macular degeneration [Unknown]
  - Visual impairment [Unknown]
  - Product packaging quantity issue [Unknown]
